FAERS Safety Report 7136999-2 (Version None)
Quarter: 2010Q4

REPORT INFORMATION
  Report Type: 
  Country: None (occurrence: None)
  Receive Date: 20101206
  Receipt Date: 20090625
  Transmission Date: 20110411
  Serious: Yes (Death, Hospitalization)
  Sender: FDA-Public Use
  Company Number: US-ACTELION-A-NJ2009-26078

PATIENT

DRUGS (2)
  1. ILOPROST INHALATION SOLUTION UNKNOWN US [Suspect]
     Indication: PULMONARY HYPERTENSION
     Route: 055
     Dates: start: 20081103
  2. TRACLEER [Concomitant]
     Indication: PULMONARY HYPERTENSION
     Route: 048
     Dates: start: 20090305

REACTIONS (4)
  - DEATH [None]
  - DYSPNOEA [None]
  - EPISTAXIS [None]
  - FLUID RETENTION [None]
